FAERS Safety Report 5824877-8 (Version None)
Quarter: 2008Q3

REPORT INFORMATION
  Report Type: 
  Country: None (occurrence: None)
  Receive Date: 20080728
  Receipt Date: 20080722
  Transmission Date: 20090109
  Serious: No
  Sender: FDA-Public Use
  Company Number: US-BOEHRINGER INGELHEIM GMBH, GERMANY-2008-BP-11510BP

PATIENT
  Sex: Male

DRUGS (3)
  1. SPIRIVA [Suspect]
     Indication: CHRONIC OBSTRUCTIVE PULMONARY DISEASE
     Route: 055
     Dates: start: 20080701
  2. INSULIN [Concomitant]
     Indication: DIABETES MELLITUS
     Route: 058
  3. GLUCOVANCE [Concomitant]
     Indication: DIABETES MELLITUS
     Dosage: 1.25/250 MG
     Route: 048
     Dates: start: 20000101

REACTIONS (1)
  - DRY MOUTH [None]
